FAERS Safety Report 8380257-5 (Version None)
Quarter: 2012Q2

REPORT INFORMATION
  Report Type: 
  Country: None (occurrence: None)
  Receive Date: 20120523
  Receipt Date: 20120521
  Transmission Date: 20120825
  Serious: Yes (Other)
  Sender: FDA-Public Use
  Company Number: PHEH2011US011414

PATIENT
  Sex: Female

DRUGS (10)
  1. VITAMIN D [Concomitant]
  2. PAXIL [Suspect]
     Indication: DEPRESSION
     Dosage: 20 MG, UNK
  3. CALCIUM CARBONATE [Suspect]
     Route: 048
  4. TUMS E-X [Suspect]
  5. ASPIRIN [Concomitant]
  6. CLONAZEPAM [Concomitant]
  7. LISINOPRIL [Concomitant]
  8. ZETIA [Concomitant]
  9. RECLAST [Suspect]
     Indication: OSTEOPOROSIS
     Route: 042
     Dates: start: 20111118
  10. LIPITOR [Concomitant]
     Indication: BLOOD CHOLESTEROL INCREASED

REACTIONS (15)
  - ARTHRALGIA [None]
  - NAUSEA [None]
  - FEELING ABNORMAL [None]
  - ABDOMINAL DISCOMFORT [None]
  - MONOPLEGIA [None]
  - CHILLS [None]
  - FATIGUE [None]
  - DEPRESSION [None]
  - CRYING [None]
  - INSOMNIA [None]
  - PAIN IN EXTREMITY [None]
  - DYSPNOEA [None]
  - HEADACHE [None]
  - PAIN [None]
  - ABDOMINAL PAIN UPPER [None]
